APPROVED DRUG PRODUCT: METHADONE HYDROCHLORIDE
Active Ingredient: METHADONE HYDROCHLORIDE
Strength: 10MG/5ML
Dosage Form/Route: SOLUTION;ORAL
Application: A090707 | Product #002
Applicant: VISTAPHARM LLC
Approved: Jun 30, 2010 | RLD: No | RS: No | Type: DISCN